FAERS Safety Report 7249253 (Version 2)
Quarter: 2014Q2

REPORT INFORMATION
  Report Type: Spontaneous
  Country: None (occurrence: None)
  Receive Date: 20091231
  Receipt Date: 20140415
  Transmission Date: 20141212
  Serious: Yes (Hospitalization, Other)
  Sender: FDA-Public Use
  Company Number: AUR-APL-2009-01623

PATIENT
  Age: 40 Year
  Sex: Female

DRUGS (2)
  1. LAMOTRIGINE [Suspect]
     Indication: EPILEPSY
     Dosage: 50MG FOR 15 DAYS, THEN -100MG
  2. PHENOBARBITAL [Suspect]
     Indication: EPILEPSY
     Dosage: 100MG DAILY FOR 10 YEARS, THEN THE DOES HALVED

REACTIONS (5)
  - Drug reaction with eosinophilia and systemic symptoms [None]
  - Status epilepticus [None]
  - Hyperthermia [None]
  - Hepatitis [None]
  - Rash generalised [None]
